FAERS Safety Report 4435091-5 (Version None)
Quarter: 2004Q3

REPORT INFORMATION
  Report Type: 
  Country: None (occurrence: None)
  Receive Date: 20040826
  Receipt Date: 20040819
  Transmission Date: 20050211
  Serious: Yes (Hospitalization)
  Sender: FDA-Public Use
  Company Number: 206683

PATIENT
  Age: 49 Year
  Sex: Male
  Weight: 98.4 kg

DRUGS (15)
  1. BEVACIZUMAB (BEVACIZUMAB) PWDR + SOLVENT, INFUSION SOLN, 100MG [Suspect]
     Indication: COLORECTAL CANCER
     Dosage: 5 MG/KG, Q2W, INTRAVENOUS
     Route: 042
     Dates: start: 20040407
  2. OXALIPLATIN (OXALIPLATIN) [Suspect]
     Indication: COLORECTAL CANCER
     Dosage: 85 MG/M2, Q2W, INTRAVENOUS
     Route: 042
     Dates: start: 20040407
  3. FLUOROURACIL [Suspect]
     Indication: COLORECTAL CANCER
     Dosage: 500 MG/M2, 1 WEEK, INTRAVENOUS
     Route: 042
     Dates: start: 20040407
  4. LEUCOVORIN CALCIUM [Suspect]
     Indication: COLORECTAL CANCER
     Dosage: 20 MG/M2, 1/WEEK, INTRAVENOUS
     Route: 042
     Dates: start: 20040407
  5. FLUCONAZOLE [Concomitant]
  6. INSULIN [Concomitant]
  7. IRON (IRON NOS) [Concomitant]
  8. ALPRAZOLAM [Concomitant]
  9. ZOLPIDEM TARTRATE [Concomitant]
  10. EPOETIN ALFA (EPOETIN ALFA) [Concomitant]
  11. ESOMEPRAZOLE (ESOMEPRAZOLE MAGNESIUM) [Concomitant]
  12. FLUCONAZOLE [Concomitant]
  13. PIPERACILLIN + TAZOBACTAM (PIPERACILLIN SODIUM, TAZOBACTAM) [Concomitant]
  14. NICOTINIC ACID (NIACIN) [Concomitant]
  15. PRAVASTATIN (PRAVASTATIN SODIUM) [Concomitant]

REACTIONS (5)
  - HEPATIC LESION [None]
  - LIVER ABSCESS [None]
  - LIVER DISORDER [None]
  - METASTASES TO LIVER [None]
  - PYREXIA [None]
